FAERS Safety Report 17647632 (Version 4)
Quarter: 2020Q2

REPORT INFORMATION
  Report Type: Report from Study
  Country: None (occurrence: ES)
  Receive Date: 20200409
  Receipt Date: 20200417
  Transmission Date: 20200713
  Serious: Yes (Other)
  Sender: FDA-Public Use
  Company Number: ES-ABBVIE-20K-144-3356811-00

PATIENT
  Age: 71 Year
  Sex: Female

DRUGS (1)
  1. DUODOPA [Suspect]
     Active Substance: CARBIDOPA\LEVODOPA
     Indication: PARKINSON^S DISEASE
     Route: 050
     Dates: start: 20180411

REACTIONS (7)
  - Gastrointestinal inflammation [Not Recovered/Not Resolved]
  - On and off phenomenon [Unknown]
  - Abdominal distension [Recovered/Resolved]
  - Abdominal rigidity [Recovered/Resolved]
  - Freezing phenomenon [Recovered/Resolved]
  - Intestinal obstruction [Not Recovered/Not Resolved]
  - Pyrexia [Recovered/Resolved]

NARRATIVE: CASE EVENT DATE: 20200405
